FAERS Safety Report 9103632 (Version 1)
Quarter: 2013Q1

REPORT INFORMATION
  Report Type: Spontaneous
  Country: AE (occurrence: AE)
  Receive Date: 20130219
  Receipt Date: 20130219
  Transmission Date: 20140127
  Serious: Yes (Death)
  Sender: FDA-Public Use
  Company Number: AE-BAYER-2013-018755

PATIENT
  Age: 52 Year
  Sex: Male
  Weight: 90 kg

DRUGS (7)
  1. AVALOX [Suspect]
     Dosage: UNK, QD
     Route: 048
  2. CEFTRIAXONE [Suspect]
     Dosage: UNK, ONCE
     Route: 030
  3. VOLTAREN [Suspect]
     Dosage: UNK UNK, ONCE
     Route: 030
  4. FEXOFENADINE HYDROCHLORIDE [Concomitant]
     Dosage: UNK, QD
     Route: 048
  5. LOXOPROFEN [Concomitant]
     Dosage: UNK UNK, TID
     Route: 048
  6. ESOMEPRAZOLE [Concomitant]
     Dosage: 40 MG, QD
     Route: 048
  7. PROSPAN [Concomitant]
     Dosage: 5 ML, TID
     Route: 048

REACTIONS (3)
  - Choking [Fatal]
  - Anaphylactic shock [None]
  - Sudden death [None]
